FAERS Safety Report 7603321-4 (Version None)
Quarter: 2011Q3

REPORT INFORMATION
  Report Type: 
  Country: None (occurrence: None)
  Receive Date: 20110712
  Receipt Date: 20110629
  Transmission Date: 20111222
  Serious: Yes (Hospitalization)
  Sender: FDA-Public Use
  Company Number: PHHY2011SE57434

PATIENT
  Sex: Female

DRUGS (2)
  1. TEGRETOL [Suspect]
     Indication: EPILEPSY
     Dosage: UNK UKN, UNK
     Route: 048
     Dates: start: 20110101, end: 20110318
  2. KEPPRA [Suspect]
     Indication: EPILEPSY
     Dosage: UNK UKN, UNK
     Route: 048
     Dates: start: 20110301, end: 20110325

REACTIONS (5)
  - LOCALISED OEDEMA [None]
  - OEDEMA PERIPHERAL [None]
  - MIGRAINE [None]
  - PRURITUS [None]
  - PALPITATIONS [None]
